FAERS Safety Report 8031649-5 (Version None)
Quarter: 2012Q1

REPORT INFORMATION
  Report Type: 
  Country: None (occurrence: None)
  Receive Date: 20120109
  Receipt Date: 20111226
  Transmission Date: 20120608
  Serious: Yes (Other)
  Sender: FDA-Public Use
  Company Number: JP-NAPPMUNDI-GBR-2011-0009335

PATIENT
  Age: 75 Year
  Sex: Male

DRUGS (1)
  1. BUPRENORPHINE [Suspect]
     Indication: BACK PAIN
     Dosage: 5 MCG, Q1H
     Route: 062
     Dates: start: 20111209, end: 20111201

REACTIONS (7)
  - CHOKING SENSATION [None]
  - FEELING ABNORMAL [None]
  - NAUSEA [None]
  - SENSATION OF PRESSURE [None]
  - CONFUSIONAL STATE [None]
  - FATIGUE [None]
  - ASTHENIA [None]
